FAERS Safety Report 10988794 (Version 2)
Quarter: 2015Q2

REPORT INFORMATION
  Report Type: Spontaneous
  Country: US (occurrence: US)
  Receive Date: 20150405
  Receipt Date: 20150525
  Transmission Date: 20150821
  Serious: No
  Sender: FDA-Public Use
  Company Number: US-JNJFOC-20140908603

PATIENT
  Age: 52 Year
  Sex: Female
  Weight: 61.24 kg

DRUGS (19)
  1. REMICADE [Suspect]
     Active Substance: INFLIXIMAB
     Indication: RHEUMATOID ARTHRITIS
     Dosage: FOR APPROXIMATELY 1 YEAR
     Route: 042
     Dates: start: 2004
  2. VITAMIN B6 [Concomitant]
     Active Substance: PYRIDOXINE HYDROCHLORIDE
     Dosage: 20 YEARS SINCE DIAGNOSIS WITH RA
     Route: 065
  3. REMICADE [Suspect]
     Active Substance: INFLIXIMAB
     Indication: RHEUMATOID ARTHRITIS
     Route: 042
     Dates: end: 2014
  4. LORTAB [Concomitant]
     Active Substance: ACETAMINOPHEN\HYDROCODONE BITARTRATE
     Indication: PAIN
     Route: 048
     Dates: start: 2014
  5. VITAMIN A [Concomitant]
     Active Substance: VITAMIN A
     Dosage: 20 YEARS SINCE DIAGNOSIS WITH RA
     Route: 065
  6. VITAMIN B12 [Concomitant]
     Active Substance: CYANOCOBALAMIN
     Dosage: 20 YEARS SINCE DIAGNOSIS WITH RA
     Route: 065
  7. CELEBREX [Suspect]
     Active Substance: CELECOXIB
     Indication: RHEUMATOID ARTHRITIS
     Route: 065
  8. PREDNISONE. [Concomitant]
     Active Substance: PREDNISONE
     Indication: RHEUMATOID ARTHRITIS
     Route: 048
  9. CALCIUM [Concomitant]
     Active Substance: CALCIUM
     Dosage: 20 YEARS SINCE DIAGNOSIS WITH RA
     Route: 065
  10. REMICADE [Suspect]
     Active Substance: INFLIXIMAB
     Indication: RHEUMATOID ARTHRITIS
     Route: 042
     Dates: start: 2000, end: 2004
  11. LODINE [Concomitant]
     Active Substance: ETODOLAC
     Route: 065
  12. VITAMIN E [Concomitant]
     Active Substance: .ALPHA.-TOCOPHEROL
     Dosage: 20 YEARS SINCE DIAGNOSIS WITH RA
     Route: 065
  13. VITAMIN C [Concomitant]
     Active Substance: ASCORBIC ACID
     Dosage: 20 YEARS SINCE DIAGNOSIS WITH RA
     Route: 065
  14. VITAMIN D3 [Concomitant]
     Active Substance: CHOLECALCIFEROL
     Dosage: 20 YEARS SINCE DIAGNOSIS WITH RA
     Route: 065
  15. SOMA [Concomitant]
     Active Substance: CARISOPRODOL
     Indication: PAIN
     Dosage: 350
     Route: 048
  16. PLAQUENIL [Concomitant]
     Active Substance: HYDROXYCHLOROQUINE SULFATE
     Route: 065
  17. GLUCOSAMINE [Concomitant]
     Active Substance: GLUCOSAMINE
     Dosage: 20 YEARS SINCE DIAGNOSIS WITH RA
     Route: 065
  18. MAGNESIUM [Concomitant]
     Active Substance: MAGNESIUM
     Dosage: 20 YEARS SINCE DIAGNOSIS WITH RA
     Route: 065
  19. ZINC [Concomitant]
     Active Substance: ZINC\ZINC CHLORIDE
     Dosage: 20 YEARS SINCE DIAGNOSIS WITH RA
     Route: 065

REACTIONS (6)
  - Unevaluable event [Unknown]
  - Wound [Recovered/Resolved]
  - Hypokinesia [Recovered/Resolved]
  - Malaise [Unknown]
  - Alopecia [Recovered/Resolved]
  - Nasopharyngitis [Recovered/Resolved]

NARRATIVE: CASE EVENT DATE: 201312
